FAERS Safety Report 4590377-9 (Version None)
Quarter: 2005Q1

REPORT INFORMATION
  Report Type: 
  Country: None (occurrence: None)
  Receive Date: 20050217
  Receipt Date: 20050202
  Transmission Date: 20050727
  Serious: Yes (Other)
  Sender: FDA-Public Use
  Company Number: EM2005-0040

PATIENT
  Age: 78 Year
  Sex: Female
  Weight: 47.6 kg

DRUGS (11)
  1. TOBI [Suspect]
     Indication: PULMONARY FIBROSIS
     Dosage: 300 MG, BID, INHALATION
     Route: 055
     Dates: start: 20050122, end: 20050124
  2. CAPTOPRIL [Concomitant]
  3. DIGOXIN [Concomitant]
  4. LASIX [Concomitant]
  5. ACIPHEX [Concomitant]
  6. ZOCOR [Concomitant]
  7. AMBIEN [Concomitant]
  8. AMBIEN [Concomitant]
  9. ACETYLSALICYLIC ACID SRT [Concomitant]
  10. ZITHROMAX [Concomitant]
  11. ADVAIR DISKUS (FLUTICASONE PROPIONATE) [Concomitant]

REACTIONS (1)
  - APHONIA [None]
